FAERS Safety Report 11134654 (Version 1)
Quarter: 2015Q2

REPORT INFORMATION
  Report Type: Spontaneous
  Country: PT (occurrence: PT)
  Receive Date: 20150525
  Receipt Date: 20150525
  Transmission Date: 20150821
  Serious: Yes (Hospitalization, Other)
  Sender: FDA-Public Use
  Company Number: PT-ROCHE-1580802

PATIENT
  Age: 72 Year
  Sex: Male
  Weight: 70 kg

DRUGS (1)
  1. ROACTEMRA [Suspect]
     Active Substance: TOCILIZUMAB
     Indication: RHEUMATOID ARTHRITIS
     Dosage: DATE OF  FIRST DOSE OF TOCILIZUMAB- 07/NOV/2013?DATE OF  SECOND DOSE OF TOCILIZUMAB- /FEB/2014?DATE
     Route: 042
     Dates: start: 20131107, end: 20140505

REACTIONS (3)
  - Erythema multiforme [Recovered/Resolved]
  - Bursitis infective [Recovered/Resolved]
  - Polyneuropathy [Recovered/Resolved]

NARRATIVE: CASE EVENT DATE: 201312
